FAERS Safety Report 5646255-7 (Version None)
Quarter: 2008Q1

REPORT INFORMATION
  Report Type: 
  Country: None (occurrence: None)
  Receive Date: 20080301
  Receipt Date: 20080221
  Transmission Date: 20080703
  Serious: Yes (Hospitalization, Other)
  Sender: FDA-Public Use
  Company Number: GB-JNJFOC-20080204890

PATIENT
  Sex: Female
  Weight: 69 kg

DRUGS (5)
  1. REMICADE [Suspect]
     Indication: RHEUMATOID ARTHRITIS
     Route: 042
  2. METHOTREXATE [Concomitant]
     Dosage: AT BASELINE
     Route: 065
  3. FOLIC ACID [Concomitant]
     Dosage: AT BASELINE
     Route: 065
  4. GABAPENTIN [Concomitant]
     Dosage: AT BASELINE
     Route: 065
  5. LAMICTAL [Concomitant]
     Dosage: AT BASELINE
     Route: 065

REACTIONS (2)
  - ARTHRITIS [None]
  - SURGERY [None]
